FAERS Safety Report 12759199 (Version 1)
Quarter: 2016Q3

REPORT INFORMATION
  Report Type: Spontaneous
  Country: US (occurrence: US)
  Receive Date: 20160919
  Receipt Date: 20160919
  Transmission Date: 20161109
  Serious: Yes (Hospitalization)
  Sender: FDA-Public Use
  Company Number: US-SMITH AND NEPHEW, INC-2016SMT00787

PATIENT
  Age: 68 Year
  Sex: Female
  Weight: 106.58 kg

DRUGS (3)
  1. REGRANEX [Suspect]
     Active Substance: BECAPLERMIN
     Indication: DIABETIC ULCER
     Dosage: UNK, ONCE
     Route: 061
     Dates: start: 20160826
  2. UNSPECIFIED CHEMOTHERAPY [Concomitant]
     Dosage: UNK
     Dates: start: 201506
  3. UNSPECIFIED DIABETES ^SHOT^ [Concomitant]
     Dosage: UNK, 2X/DAY
     Route: 058

REACTIONS (3)
  - Gait disturbance [Recovering/Resolving]
  - Cerebrovascular accident [Recovering/Resolving]
  - Speech disorder [Recovering/Resolving]

NARRATIVE: CASE EVENT DATE: 201608
